FAERS Safety Report 11952397 (Version 2)
Quarter: 2016Q1

REPORT INFORMATION
  Report Type: Spontaneous
  Country: US (occurrence: US)
  Receive Date: 20160125
  Receipt Date: 20160307
  Transmission Date: 20160526
  Serious: Yes (Death, Other)
  Sender: FDA-Public Use
  Company Number: US-SMITH AND NEPHEW, INC-2015SMT00593

PATIENT
  Age: 82 Year
  Sex: Male
  Weight: 98.87 kg

DRUGS (4)
  1. REGRANEX [Suspect]
     Active Substance: BECAPLERMIN
     Indication: DIABETIC ULCER
     Dosage: UNK, ONCE
     Route: 061
     Dates: start: 20151123, end: 20151123
  2. REGRANEX [Suspect]
     Active Substance: BECAPLERMIN
     Dosage: UNK, ONCE
     Route: 061
     Dates: start: 20151125, end: 20151125
  3. LASIX [Concomitant]
     Active Substance: FUROSEMIDE
  4. 2 HEART PILLS [Concomitant]

REACTIONS (4)
  - Vascular graft occlusion [Unknown]
  - Neuropathy peripheral [Unknown]
  - Myocardial infarction [Fatal]
  - Infection [Not Recovered/Not Resolved]

NARRATIVE: CASE EVENT DATE: 2015
